FAERS Safety Report 8226098-0 (Version None)
Quarter: 2012Q1

REPORT INFORMATION
  Report Type: 
  Country: None (occurrence: None)
  Receive Date: 20120319
  Receipt Date: 20120229
  Transmission Date: 20120608
  Serious: Yes (Hospitalization)
  Sender: FDA-Public Use
  Company Number: 024686

PATIENT
  Age: 85 Year
  Sex: Female

DRUGS (9)
  1. MACUGEN [Suspect]
     Dosage: 0.3 MG, EVERY 6 WEEKS, OPHTHALMIC
     Route: 047
     Dates: start: 20080407
  2. TARKA [Concomitant]
  3. FRAXIPARIN (HEPARIN-FRACTION, CALCIUM SALT) [Concomitant]
  4. ALL OTHER THERAPEUTIC PRODUCTS [Concomitant]
  5. BETASERC (BETAHISTINE HYDROCHLORIDE) [Concomitant]
  6. ALL OTHER THERAPEUTIC PRODUCTS [Concomitant]
  7. CAVINTON (VINPOCETINE) [Concomitant]
  8. METFORMIN HYDROCHLORIDE [Concomitant]
  9. CALCIUM CARBONATE [Concomitant]

REACTIONS (6)
  - FALL [None]
  - SUBDURAL HAEMATOMA [None]
  - HEAD INJURY [None]
  - CONFUSIONAL STATE [None]
  - RED BLOOD CELL COUNT DECREASED [None]
  - LOSS OF CONSCIOUSNESS [None]
